FAERS Safety Report 5124463-1 (Version None)
Quarter: 2006Q4

REPORT INFORMATION
  Report Type: 
  Country: None (occurrence: None)
  Receive Date: 20061006
  Receipt Date: 20060928
  Transmission Date: 20070319
  Serious: Yes (Disabling)
  Sender: FDA-Public Use
  Company Number: B0440868A

PATIENT
  Age: 46 Year
  Sex: Female
  Weight: 51.8915 kg

DRUGS (2)
  1. ZYBAN [Suspect]
     Indication: EX-SMOKER
     Dosage: 7.5 GRAM(S)/ORAL
     Route: 048
     Dates: start: 20060522, end: 20060522
  2. CITALOPRAM [Concomitant]

REACTIONS (3)
  - AMNESIA [None]
  - BALANCE DISORDER [None]
  - OVERDOSE [None]
